FAERS Safety Report 8937219 (Version 1)
Quarter: 2012Q4

REPORT INFORMATION
  Report Type: Spontaneous
  Country: US (occurrence: None)
  Receive Date: 20121121
  Receipt Date: 20121121
  Transmission Date: 20130627
  Serious: Yes (Hospitalization)
  Sender: FDA-Public Use
  Company Number: UTC-025429

PATIENT
  Age: 56 Year
  Sex: Female
  Weight: 120.9 kg

DRUGS (2)
  1. TYVASO (6 MICROGRAM, AEROSOL FOR INHALATION) (TREPROSTINIL SODIUM) [Suspect]
     Indication: PULMONARY HYPERTENSION PRIMARY
     Route: 055
     Dates: start: 20120924
  2. REVATIO (SILDENAFIL CITRATE) [Concomitant]

REACTIONS (6)
  - Fluid retention [None]
  - Dehydration [None]
  - Fall [None]
  - Drug dose omission [None]
  - Pulmonary congestion [None]
  - Cough [None]
